FAERS Safety Report 17366249 (Version 4)
Quarter: 2020Q1

REPORT INFORMATION
  Report Type: Spontaneous
  Country: US (occurrence: US)
  Receive Date: 20200204
  Receipt Date: 20200311
  Transmission Date: 20200409
  Serious: Yes (Other)
  Sender: FDA-Public Use
  Company Number: US-PFIZER INC-2020047830

PATIENT
  Age: 26 Year
  Sex: Female
  Weight: 92.99 kg

DRUGS (3)
  1. XELJANZ [Suspect]
     Active Substance: TOFACITINIB CITRATE
     Indication: RHEUMATOID ARTHRITIS
     Dosage: 5 MG, 2X/DAY
     Route: 048
     Dates: start: 201903
  2. XELJANZ [Suspect]
     Active Substance: TOFACITINIB CITRATE
     Dosage: 5 MG, ALTERNATE DAY [1 EVERY OTHER DAY INSTEAD OF 2 A DAY AS PRESCRIBED]
  3. METHOTREXATE. [Concomitant]
     Active Substance: METHOTREXATE
     Indication: RHEUMATOID ARTHRITIS
     Dosage: 25 MG, WEEKLY (2.5MG 10 TABLETS ONCE WEEKLY BY MOUTH)
     Route: 048

REACTIONS (8)
  - Pain [Unknown]
  - Joint swelling [Not Recovered/Not Resolved]
  - Elbow deformity [Unknown]
  - Pneumonia [Unknown]
  - Mobility decreased [Unknown]
  - Intentional product misuse [Unknown]
  - Inflammation [Unknown]
  - Condition aggravated [Unknown]

NARRATIVE: CASE EVENT DATE: 201912
